FAERS Safety Report 22361177 (Version 1)
Quarter: 2023Q2

REPORT INFORMATION
  Report Type: Spontaneous
  Country: DE (occurrence: DE)
  Receive Date: 20230524
  Receipt Date: 20230524
  Transmission Date: 20230722
  Serious: Yes (Death, Other)
  Sender: FDA-Public Use
  Company Number: DE-AMGEN-DEUSP2023084789

PATIENT

DRUGS (1)
  1. BEVACIZUMAB [Suspect]
     Active Substance: BEVACIZUMAB
     Indication: Radiation injury
     Dosage: UNK
     Route: 065

REACTIONS (5)
  - Death [Fatal]
  - Nervous system disorder [Fatal]
  - Non-small cell lung cancer [Unknown]
  - Non-small cell lung cancer metastatic [Unknown]
  - Off label use [Unknown]
